FAERS Safety Report 22028926 (Version 1)
Quarter: 2023Q1

REPORT INFORMATION
  Report Type: Spontaneous
  Country: US (occurrence: None)
  Receive Date: 20230221
  Receipt Date: 20230221
  Transmission Date: 20230418
  Serious: No
  Sender: FDA-Public Use
  Company Number: None

PATIENT
  Age: 3 Year
  Sex: Male
  Weight: 15.75 kg

DRUGS (1)
  1. AMOXICILLIN [Suspect]
     Active Substance: AMOXICILLIN
     Dates: start: 20230213, end: 20230220

REACTIONS (3)
  - Rash [None]
  - Nonspecific reaction [None]
  - Product quality issue [None]

NARRATIVE: CASE EVENT DATE: 20230220
